FAERS Safety Report 22280567 (Version 1)
Quarter: 2023Q2

REPORT INFORMATION
  Report Type: Spontaneous
  Country: US (occurrence: None)
  Receive Date: 20230502
  Receipt Date: 20230502
  Transmission Date: 20230722
  Serious: Yes (Hospitalization)
  Sender: FDA-Public Use
  Company Number: None

PATIENT
  Age: 48 Year
  Sex: Female
  Weight: 88.9 kg

DRUGS (2)
  1. BELATACEPT [Suspect]
     Active Substance: BELATACEPT
     Indication: Renal transplant
     Dosage: OTHER FREQUENCY : EVERY 28 DAYS;?
     Route: 042
     Dates: start: 20220120
  2. EVEROLIMUS [Suspect]
     Active Substance: EVEROLIMUS

REACTIONS (3)
  - Pneumonia [None]
  - Incisional hernia [None]
  - Constipation [None]

NARRATIVE: CASE EVENT DATE: 20220415
